FAERS Safety Report 12186290 (Version 1)
Quarter: 2016Q1

REPORT INFORMATION
  Report Type: Spontaneous
  Country: US (occurrence: US)
  Receive Date: 20160317
  Receipt Date: 20160317
  Transmission Date: 20160526
  Serious: Yes (Other)
  Sender: FDA-Public Use
  Company Number: US-ACCORD-038783

PATIENT
  Age: 27 Year
  Sex: Female

DRUGS (2)
  1. METHOTREXATE [Suspect]
     Active Substance: METHOTREXATE
     Indication: OSTEOSARCOMA
     Dosage: 5.5 G/M2 X 1 DOSE
  2. SODIUM BICARBONATE. [Concomitant]
     Active Substance: SODIUM BICARBONATE
     Dosage: SOLUTION INFUSED

REACTIONS (2)
  - Crystal nephropathy [Recovered/Resolved]
  - Acute kidney injury [Recovered/Resolved]
